FAERS Safety Report 12959492 (Version 1)
Quarter: 2016Q4

REPORT INFORMATION
  Report Type: Spontaneous
  Country: US (occurrence: US)
  Receive Date: 20161118
  Receipt Date: 20161118
  Transmission Date: 20170207
  Serious: Yes (Other)
  Sender: FDA-Public Use
  Company Number: None

PATIENT
  Sex: Female

DRUGS (1)
  1. VERTIGOHEEL [Suspect]
     Active Substance: HOMEOPATHICS
     Indication: VERTIGO
     Dates: start: 20161117, end: 20161118

REACTIONS (1)
  - Hypersensitivity [None]
